FAERS Safety Report 18503958 (Version 1)
Quarter: 2020Q4

REPORT INFORMATION
  Report Type: Report from Study
  Country: FR (occurrence: FR)
  Receive Date: 20201113
  Receipt Date: 20201113
  Transmission Date: 20210114
  Serious: Yes (Life-Threatening, Other)
  Sender: FDA-Public Use
  Company Number: FR-GILEAD-2020-0458290

PATIENT
  Age: 75 Year
  Sex: Male
  Weight: 75 kg

DRUGS (13)
  1. PARACETAMOL [Concomitant]
     Active Substance: ACETAMINOPHEN
     Indication: PYREXIA
     Dosage: UNK
     Route: 042
     Dates: start: 20200404
  2. PARACETAMOL [Concomitant]
     Active Substance: ACETAMINOPHEN
     Indication: PAIN
  3. CEFTRIAXONE. [Concomitant]
     Active Substance: CEFTRIAXONE
     Indication: ANTIBIOTIC THERAPY
     Dosage: UNK
     Route: 042
     Dates: start: 20200404
  4. FUROSEMIDE. [Concomitant]
     Active Substance: FUROSEMIDE
     Indication: FLUID OVERLOAD
     Dosage: UNK
     Dates: start: 20200418
  5. MOVICOL PLAIN [Concomitant]
     Active Substance: POLYETHYLENE GLYCOL 3350\POTASSIUM CHLORIDE\SODIUM BICARBONATE\SODIUM CHLORIDE
     Indication: LAXATIVE SUPPORTIVE CARE
     Dosage: UNK
     Route: 048
     Dates: start: 20200406
  6. NEFOPAM [Concomitant]
     Active Substance: NEFOPAM
     Indication: PAIN
     Dosage: UNK
     Route: 042
     Dates: start: 20200420
  7. REMDESIVIR. [Suspect]
     Active Substance: REMDESIVIR
     Indication: CORONAVIRUS INFECTION
     Dosage: 100 MG, QD
     Route: 042
     Dates: start: 20200403, end: 20200413
  8. EUPANTOL [Concomitant]
     Active Substance: PANTOPRAZOLE SODIUM
     Dosage: 40 MG
     Route: 042
     Dates: start: 20200406
  9. OXYGEN. [Concomitant]
     Active Substance: OXYGEN
     Dosage: 5-9 L
  10. FUROSEMIDE. [Concomitant]
     Active Substance: FUROSEMIDE
     Indication: HYPERTENSION
  11. PANTOPRAZOLE [Concomitant]
     Active Substance: PANTOPRAZOLE
     Indication: PROPHYLAXIS AGAINST GASTROINTESTINAL ULCER
     Dosage: UNK
     Route: 048
     Dates: start: 20200411
  12. LOVENOX [Suspect]
     Active Substance: ENOXAPARIN SODIUM
     Indication: THROMBOSIS PROPHYLAXIS
     Dosage: 0.4 ML - 1.6 ML
     Route: 058
     Dates: start: 20200406, end: 20200421
  13. POTASSIUM CHLORIDE. [Concomitant]
     Active Substance: POTASSIUM CHLORIDE
     Dosage: UNK
     Route: 042
     Dates: start: 20200421, end: 20200421

REACTIONS (14)
  - Pneumonia bacterial [Not Recovered/Not Resolved]
  - Respiratory failure [Recovered/Resolved]
  - Tachypnoea [Recovered/Resolved]
  - Respiratory failure [Unknown]
  - Alkalosis [Not Recovered/Not Resolved]
  - Mechanical ventilation [Recovered/Resolved]
  - Hyperglycaemia [Recovered/Resolved]
  - Pneumonia [Not Recovered/Not Resolved]
  - Lymphopenia [Recovered/Resolved]
  - Anaemia [Not Recovered/Not Resolved]
  - Oxygen saturation decreased [Recovered/Resolved]
  - Oxygen saturation decreased [Recovered/Resolved]
  - Respiratory acidosis [Recovered/Resolved]
  - Reversal of sedation [Recovered/Resolved]

NARRATIVE: CASE EVENT DATE: 20200403
